FAERS Safety Report 11360111 (Version 1)
Quarter: 2015Q3

REPORT INFORMATION
  Report Type: Spontaneous
  Country: FR (occurrence: FR)
  Receive Date: 20150810
  Receipt Date: 20150810
  Transmission Date: 20151125
  Serious: Yes (Life-Threatening, Hospitalization)
  Sender: FDA-Public Use
  Company Number: FR-ROCHE-1618723

PATIENT
  Age: 66 Year
  Sex: Female

DRUGS (16)
  1. INEXIUM [Concomitant]
     Active Substance: ESOMEPRAZOLE
  2. NOVORAPID [Concomitant]
     Active Substance: INSULIN ASPART
  3. TAXOTERE [Suspect]
     Active Substance: DOCETAXEL
     Dosage: CYCLE 3.
     Route: 042
     Dates: start: 20131118
  4. LANTUS [Concomitant]
     Active Substance: INSULIN GLARGINE
  5. CALCIDOSE (FRANCE) [Concomitant]
  6. HERCEPTIN [Suspect]
     Active Substance: TRASTUZUMAB
     Indication: INVASIVE DUCTAL BREAST CARCINOMA
     Dosage: CYCLE 1.
     Route: 042
     Dates: start: 20131008
  7. HERCEPTIN [Suspect]
     Active Substance: TRASTUZUMAB
     Dosage: CYCLE 3.
     Route: 042
     Dates: start: 20131118
  8. TAXOTERE [Suspect]
     Active Substance: DOCETAXEL
     Indication: INVASIVE DUCTAL BREAST CARCINOMA
     Dosage: CYCLE 1.
     Route: 042
     Dates: start: 20131008
  9. TAXOTERE [Suspect]
     Active Substance: DOCETAXEL
     Dosage: CYCLE 2.
     Route: 042
     Dates: start: 20131028
  10. APROVEL [Concomitant]
     Active Substance: IRBESARTAN
  11. PREVISCAN (FRANCE) [Concomitant]
     Active Substance: FLUINDIONE
  12. SPIRIVA [Concomitant]
     Active Substance: TIOTROPIUM BROMIDE MONOHYDRATE
  13. NEURONTIN [Concomitant]
     Active Substance: GABAPENTIN
  14. HERCEPTIN [Suspect]
     Active Substance: TRASTUZUMAB
     Dosage: CYCLE 2
     Route: 042
     Dates: start: 20131028
  15. CORVASAL (FRANCE) [Concomitant]
  16. LEVOTHYROX [Concomitant]
     Active Substance: LEVOTHYROXINE

REACTIONS (4)
  - Acute kidney injury [Recovered/Resolved]
  - Generalised oedema [Recovered/Resolved]
  - Anuria [Recovered/Resolved]
  - Cardiac failure [Recovered/Resolved]

NARRATIVE: CASE EVENT DATE: 20131209
